FAERS Safety Report 21000949 (Version 1)
Quarter: 2022Q2

REPORT INFORMATION
  Report Type: Spontaneous
  Country: TR (occurrence: TR)
  Receive Date: 20220624
  Receipt Date: 20220624
  Transmission Date: 20220721
  Serious: Yes (Other)
  Sender: FDA-Public Use
  Company Number: TR-TEVA-2022-TR-2050200

PATIENT
  Age: 17 Year
  Sex: Male

DRUGS (4)
  1. PREGABALIN [Suspect]
     Active Substance: PREGABALIN
     Indication: Drug abuse
     Dosage: 900-1200 MG/DAY
     Route: 065
  2. RISPERIDONE [Suspect]
     Active Substance: RISPERIDONE
     Indication: Product used for unknown indication
     Route: 065
  3. METHYLPHENIDATE [Suspect]
     Active Substance: METHYLPHENIDATE
     Indication: Attention deficit hyperactivity disorder
     Route: 065
  4. CLOMIPRAMINE [Suspect]
     Active Substance: CLOMIPRAMINE
     Indication: Drug abuse
     Route: 065

REACTIONS (8)
  - Withdrawal syndrome [Unknown]
  - Hyperhidrosis [Unknown]
  - Aggression [Unknown]
  - Tremor [Unknown]
  - Somnolence [Unknown]
  - Decreased appetite [Unknown]
  - Drug abuse [Unknown]
  - Overdose [Unknown]
